FAERS Safety Report 19933015 (Version 1)
Quarter: 2021Q4

REPORT INFORMATION
  Report Type: Spontaneous
  Country: NL (occurrence: TH)
  Receive Date: 20211008
  Receipt Date: 20211008
  Transmission Date: 20220304
  Serious: Yes (Hospitalization, Other)
  Sender: FDA-Public Use
  Company Number: TH-MLMSERVICE-20210928-3124167-1

PATIENT
  Age: 20 Year
  Sex: Female

DRUGS (3)
  1. TACROLIMUS [Suspect]
     Active Substance: TACROLIMUS
     Indication: Renal transplant
     Dosage: UNK UNK, UNKNOWN FREQ.
     Route: 065
  2. MYCOPHENOLATE MOFETIL [Suspect]
     Active Substance: MYCOPHENOLATE MOFETIL
     Indication: Renal transplant
     Dosage: UNK UNK, UNKNOWN FREQ.
     Route: 065
  3. PREDNISOLONE [Suspect]
     Active Substance: PREDNISOLONE
     Indication: Renal transplant
     Dosage: UNK UNK, UNKNOWN FREQ.
     Route: 065

REACTIONS (6)
  - Tubulointerstitial nephritis [Recovering/Resolving]
  - Post infection glomerulonephritis [Recovering/Resolving]
  - Granuloma [Recovering/Resolving]
  - Renal graft infection [Recovering/Resolving]
  - Cytomegalovirus infection [Recovering/Resolving]
  - Cytomegalovirus viraemia [Recovering/Resolving]
